FAERS Safety Report 23066106 (Version 1)
Quarter: 2023Q4

REPORT INFORMATION
  Report Type: Report from Study
  Country: CA (occurrence: CA)
  Receive Date: 20231014
  Receipt Date: 20231014
  Transmission Date: 20240109
  Serious: Yes (Other)
  Sender: FDA-Public Use
  Company Number: None

PATIENT
  Age: 13 Year
  Sex: Female
  Weight: 35 kg

DRUGS (7)
  1. METHOTREXATE [Suspect]
     Active Substance: METHOTREXATE
     Indication: Product used for unknown indication
  2. INFLIXIMAB [Suspect]
     Active Substance: INFLIXIMAB
     Indication: Crohn^s disease
  3. INFLIXIMAB [Suspect]
     Active Substance: INFLIXIMAB
     Indication: Crohn^s disease
  4. INFLIXIMAB [Suspect]
     Active Substance: INFLIXIMAB
     Indication: Crohn^s disease
     Route: 042
  5. INFLIXIMAB [Suspect]
     Active Substance: INFLIXIMAB
     Indication: Crohn^s disease
  6. INFLIXIMAB [Suspect]
     Active Substance: INFLIXIMAB
     Indication: Crohn^s disease
     Route: 042
  7. INFLIXIMAB [Suspect]
     Active Substance: INFLIXIMAB
     Indication: Crohn^s disease
     Route: 042

REACTIONS (12)
  - Haematochezia [Recovered/Resolved]
  - Heart rate irregular [Recovered/Resolved]
  - Acne [Recovered/Resolved]
  - Body temperature abnormal [Recovered/Resolved]
  - Blood pressure increased [Recovered/Resolved]
  - COVID-19 [Recovered/Resolved]
  - Ear pain [Recovered/Resolved]
  - Discomfort [Recovered/Resolved]
  - Incorrect drug administration rate [Recovered/Resolved]
  - Oxygen saturation abnormal [Recovered/Resolved]
  - Poor venous access [Recovered/Resolved]
  - Product use issue [Recovered/Resolved]
